FAERS Safety Report 7212589-8 (Version None)
Quarter: 2011Q1

REPORT INFORMATION
  Report Type: 
  Country: None (occurrence: None)
  Receive Date: 20110106
  Receipt Date: 20101229
  Transmission Date: 20110831
  Serious: No
  Sender: FDA-Public Use
  Company Number: US-PFIZER INC-2010181860

PATIENT
  Sex: Female

DRUGS (3)
  1. LESCOL XL [Suspect]
     Dosage: UNK
  2. CRESTOR [Suspect]
     Dosage: UNK
  3. LIPITOR [Suspect]
     Dosage: UNK

REACTIONS (7)
  - OEDEMA PERIPHERAL [None]
  - WEIGHT INCREASED [None]
  - MUSCLE SPASMS [None]
  - RHINORRHOEA [None]
  - SWOLLEN TONGUE [None]
  - MIDDLE INSOMNIA [None]
  - DEPRESSION [None]
